FAERS Safety Report 6790395-6 (Version None)
Quarter: 2010Q2

REPORT INFORMATION
  Report Type: 
  Country: None (occurrence: None)
  Receive Date: 20100624
  Receipt Date: 20100614
  Transmission Date: 20101027
  Serious: Yes (Other)
  Sender: FDA-Public Use
  Company Number: PHHY2010US32590

PATIENT
  Sex: Female

DRUGS (2)
  1. EXJADE [Suspect]
     Dosage: 1250 MG, QD
     Route: 048
  2. EXJADE [Suspect]
     Dosage: 1000 MG, QD
     Route: 048

REACTIONS (1)
  - CYSTITIS [None]
